FAERS Safety Report 9691831 (Version 2)
Quarter: 2014Q1

REPORT INFORMATION
  Report Type: Report from Study
  Country: DE (occurrence: DE)
  Receive Date: 20131117
  Receipt Date: 20140107
  Transmission Date: 20141002
  Serious: Yes (Hospitalization, Other)
  Sender: FDA-Public Use
  Company Number: DE-ASTRAZENECA-2013SE82894

PATIENT
  Age: 27821 Day
  Sex: Male

DRUGS (11)
  1. AZD6140 [Suspect]
     Indication: CORONARY ARTERY DISEASE
     Route: 048
     Dates: start: 20110720, end: 20130815
  2. AZD6140 [Suspect]
     Indication: CORONARY ARTERY DISEASE
     Route: 048
     Dates: start: 20130824, end: 20131126
  3. ASA [Suspect]
     Route: 048
  4. BISOPROLOL [Concomitant]
     Indication: HYPERTENSION
     Route: 048
  5. RAMIPRIL [Concomitant]
     Indication: HYPERTENSION
     Route: 048
  6. SIMVASTATIN [Concomitant]
     Indication: CORONARY ARTERY DISEASE
     Route: 048
  7. FLUFENAMIN (MOBILAT) SALVE [Concomitant]
     Indication: CONTUSION
     Route: 061
     Dates: start: 20130509
  8. PANTOZOL [Concomitant]
     Indication: PROPHYLAXIS AGAINST GASTROINTESTINAL ULCER
     Route: 048
  9. CARMEN [Concomitant]
     Indication: HYPERTENSION
     Route: 048
  10. TORASEMID [Concomitant]
     Indication: HYPERTENSION
     Route: 048
  11. PARACETAMOL [Concomitant]
     Indication: OSTEOARTHRITIS
     Route: 048

REACTIONS (2)
  - Anaemia [Recovered/Resolved]
  - Gastroenteritis [Recovered/Resolved]
